FAERS Safety Report 5232244-3 (Version None)
Quarter: 2007Q1

REPORT INFORMATION
  Report Type: 
  Country: None (occurrence: None)
  Receive Date: 20070207
  Receipt Date: 20070124
  Transmission Date: 20070707
  Serious: Yes (Hospitalization)
  Sender: FDA-Public Use
  Company Number: PHNU2007BG00670

PATIENT
  Age: 34 Year
  Sex: Female

DRUGS (2)
  1. TEGRETOL [Suspect]
     Indication: BRAIN CONTUSION
     Dosage: 300 MG/DAY
     Route: 048
     Dates: start: 20061129, end: 20070104
  2. BISEPTOL [Concomitant]
     Route: 048
     Dates: start: 20061213, end: 20061218

REACTIONS (5)
  - BLOOD CREATINE PHOSPHOKINASE MB ABNORMAL [None]
  - ELECTROCARDIOGRAM ABNORMAL [None]
  - MYOCARDITIS [None]
  - PERIORBITAL OEDEMA [None]
  - RASH GENERALISED [None]
